FAERS Safety Report 9674884 (Version 3)
Quarter: 2013Q4

REPORT INFORMATION
  Report Type: Report from Study
  Country: AR (occurrence: AR)
  Receive Date: 20131107
  Receipt Date: 20131119
  Transmission Date: 20140711
  Serious: Yes (Other)
  Sender: FDA-Public Use
  Company Number: PHHY2013AR126101

PATIENT
  Sex: Female

DRUGS (2)
  1. ACLASTA [Suspect]
     Indication: OSTEOPOROSIS
     Dosage: UNK UKN, ANNUALLY
     Route: 042
     Dates: start: 2003
  2. ACLASTA [Suspect]
     Dosage: UNK UKN, ANNUALLY
     Route: 042
     Dates: start: 2007, end: 2007

REACTIONS (3)
  - Maculopathy [Not Recovered/Not Resolved]
  - Visual impairment [Unknown]
  - Feeling abnormal [Unknown]
